FAERS Safety Report 9188365 (Version 1)
Quarter: 2013Q1

REPORT INFORMATION
  Report Type: Spontaneous
  Country: RU (occurrence: RU)
  Receive Date: 20130325
  Receipt Date: 20130325
  Transmission Date: 20140127
  Serious: Yes (Hospitalization, Other)
  Sender: FDA-Public Use
  Company Number: PHHY2013RU026800

PATIENT
  Sex: Female

DRUGS (10)
  1. IMATINIB [Suspect]
     Indication: CHRONIC MYELOID LEUKAEMIA
     Dosage: 400 MG, DAILY
  2. IMATINIB [Suspect]
     Dosage: 600 MG, DAILY
  3. IMATINIB [Suspect]
     Dosage: 800 MG, DAILY
  4. HEPARIN [Concomitant]
     Dosage: 500 U, UNK
  5. ALLOPURINOL [Concomitant]
     Indication: HYPERURICAEMIA
     Dosage: 300 MG, DAILY
     Route: 048
  6. THROMBO ASA [Concomitant]
     Dosage: 100 MG, DAILY
     Route: 048
  7. OMEPRAZOLE [Concomitant]
     Dosage: UNK UKN, BID
  8. SALINE [Concomitant]
     Dosage: 2 U, (2 VOLUMES A DAY)
     Route: 042
  9. BISEPTOL [Concomitant]
     Indication: PROPHYLAXIS
     Dosage: 480 MG, (3 TIMES A WEEK)
  10. CALCIUM + VITAMIN D [Concomitant]
     Indication: PROPHYLAXIS
     Dosage: 1 DF, DAILY
     Route: 048

REACTIONS (19)
  - Hodgkin^s disease [Unknown]
  - Lymphadenopathy [Unknown]
  - Lymphadenitis [Unknown]
  - Lymphatic system neoplasm [Unknown]
  - Epstein-Barr viraemia [Unknown]
  - Second primary malignancy [Unknown]
  - Blood lactate dehydrogenase increased [Unknown]
  - Hepatosplenomegaly [Unknown]
  - Marrow hyperplasia [Unknown]
  - Cystitis [Unknown]
  - Escherichia infection [Unknown]
  - Leukaemia recurrent [Unknown]
  - Pneumonia [Unknown]
  - Candida infection [Unknown]
  - Leukopenia [Unknown]
  - Pyrexia [Unknown]
  - Cough [Unknown]
  - Mouth ulceration [Unknown]
  - Drug resistance [Unknown]
